FAERS Safety Report 22004968 (Version 1)
Quarter: 2023Q1

REPORT INFORMATION
  Report Type: Spontaneous
  Country: US (occurrence: US)
  Receive Date: 20230217
  Receipt Date: 20230217
  Transmission Date: 20230417
  Serious: No
  Sender: FDA-Public Use
  Company Number: US-PFIZER INC-202300068488

PATIENT
  Age: 90 Year
  Sex: Female
  Weight: 54.43 kg

DRUGS (1)
  1. ESTRING [Suspect]
     Active Substance: ESTRADIOL
     Indication: Bladder prolapse
     Dosage: 2 MG, EVERY 3-4 MONTHS
     Route: 067

REACTIONS (2)
  - Body height decreased [Unknown]
  - Off label use [Unknown]
